FAERS Safety Report 24991999 (Version 1)
Quarter: 2025Q1

REPORT INFORMATION
  Report Type: Spontaneous
  Country: ES (occurrence: ES)
  Receive Date: 20250220
  Receipt Date: 20250220
  Transmission Date: 20250409
  Serious: Yes (Hospitalization)
  Sender: MYLAN
  Company Number: None

PATIENT
  Age: 92 Year
  Sex: Female

DRUGS (3)
  1. CITALOPRAM [Interacting]
     Active Substance: CITALOPRAM
     Indication: Depression
     Dosage: 20 MILLIGRAM, QD
     Route: 048
     Dates: start: 202307, end: 20240626
  2. FUROSEMIDE [Interacting]
     Active Substance: FUROSEMIDE
     Indication: Cardiac failure
     Dosage: 40 MILLIGRAM, QD
     Route: 048
     Dates: start: 202309, end: 20240626
  3. SPIRONOLACTONE [Interacting]
     Active Substance: SPIRONOLACTONE
     Indication: Cardiac failure
     Dosage: 25 MILLIGRAM, QD
     Route: 048
     Dates: start: 202401, end: 20240624

REACTIONS (5)
  - Chronic kidney disease [Not Recovered/Not Resolved]
  - Condition aggravated [Recovered/Resolved]
  - Inappropriate antidiuretic hormone secretion [Recovered/Resolved]
  - Hyponatraemia [Recovered/Resolved]
  - Drug interaction [Unknown]

NARRATIVE: CASE EVENT DATE: 20240626
